FAERS Safety Report 9458570 (Version 2)
Quarter: 2013Q3

REPORT INFORMATION
  Report Type: Spontaneous
  Country: CH (occurrence: CH)
  Receive Date: 20130814
  Receipt Date: 20130906
  Transmission Date: 20140515
  Serious: Yes (Other)
  Sender: FDA-Public Use
  Company Number: CH-ALLERGAN-1310606US

PATIENT
  Age: 25 Year
  Sex: Female

DRUGS (2)
  1. BOTOX LYOPHILISAT [Suspect]
     Indication: HYPERHIDROSIS
     Dosage: 40 UNITS, SINGLE
     Dates: start: 20130527, end: 20130527
  2. BOTOX LYOPHILISAT [Suspect]
     Dosage: 100 UNITS, SINGLE
     Dates: start: 20130314, end: 20130314

REACTIONS (8)
  - Loss of consciousness [Recovered/Resolved]
  - Syncope [Recovered/Resolved]
  - Incontinence [Recovered/Resolved]
  - Dizziness [Recovered/Resolved]
  - Off label use [Unknown]
  - Asthenia [Recovered/Resolved]
  - Headache [Recovered/Resolved]
  - Drug ineffective [Unknown]
